FAERS Safety Report 6507244-3 (Version None)
Quarter: 2009Q4

REPORT INFORMATION
  Report Type: 
  Country: None (occurrence: None)
  Receive Date: 20091221
  Receipt Date: 20091215
  Transmission Date: 20100525
  Serious: Yes (Death, Hospitalization)
  Sender: FDA-Public Use
  Company Number: PHEH2007US06400

PATIENT
  Sex: Female
  Weight: 59.41 kg

DRUGS (56)
  1. ZELNORM [Suspect]
     Indication: CONSTIPATION
     Dosage: 6 MG, BID
     Route: 048
     Dates: start: 20070320, end: 20070416
  2. RADIOTHERAPY [Concomitant]
     Dosage: 3500 CGY
     Dates: start: 20070220
  3. RADIOTHERAPY [Concomitant]
     Dosage: 2750 CGY
     Dates: start: 20070320, end: 20070411
  4. RADIOTHERAPY [Concomitant]
     Dosage: 1750 CGY
     Dates: start: 20070627, end: 20070706
  5. RADIOTHERAPY [Concomitant]
     Dosage: 1600 CGY
     Dates: start: 20070207, end: 20070618
  6. AMBIEN [Concomitant]
  7. CARAFATE [Concomitant]
  8. DAYPRO [Concomitant]
  9. DURAGESIC-100 [Concomitant]
     Dosage: 75 MCG, UNK
     Route: 062
  10. FLEXERIL [Concomitant]
  11. FLONASE [Concomitant]
  12. POTASSIUM [Concomitant]
  13. LORTAB [Concomitant]
     Dosage: 7.5 MG, UNK
     Route: 048
  14. MEGACE [Concomitant]
  15. PROTONIX [Concomitant]
  16. REGLAN [Concomitant]
  17. GEMZAR [Concomitant]
     Dosage: UNK
  18. CARBOPLATIN [Concomitant]
     Dosage: UNK
     Dates: start: 20070507
  19. SIMVASTATIN [Concomitant]
     Dosage: 10 MG, UNK
  20. LASIX [Concomitant]
     Dosage: 20 MG, QD
     Route: 048
  21. CARDIZEM [Concomitant]
     Dosage: 240 MG, UNK
     Route: 048
  22. K-DUR [Concomitant]
     Dosage: 20 MEQ, UNK
  23. ASPIRIN [Concomitant]
     Dosage: 325 MG, BID
  24. ASPIRIN [Concomitant]
     Dosage: 81 MG, QD
  25. TICLID [Concomitant]
     Dosage: 250 MG, BID
     Route: 048
  26. RESTORIL [Concomitant]
     Indication: INSOMNIA
     Dosage: 15 MG, UNK
  27. PHENERGAN ^AVENTIS PHARMA^ [Concomitant]
     Indication: NAUSEA
     Dosage: 25 MG, UNK
  28. MEPERIDINE HYDROCHLORIDE [Concomitant]
     Dosage: UNK
  29. VALIUM [Concomitant]
     Dosage: 2 MG, UNK
  30. NITROGLYCERIN [Concomitant]
     Dosage: 50 MG, UNK
  31. ZOCOR [Concomitant]
     Dosage: 10 MG, QD
  32. MAGNESIUM CITRATE [Concomitant]
  33. LACTULOSE [Concomitant]
     Dosage: 20 MG, UNK
  34. MEGESTROL ACETATE [Concomitant]
     Dosage: 400 MG, UNK
  35. PREDNISONE [Concomitant]
     Dosage: 20 MG, UNK
  36. ZOFRAN [Concomitant]
     Indication: NAUSEA
     Dosage: 4 MG, UNK
  37. DILAUDID [Concomitant]
     Dosage: 1 MG, Q4H
  38. DULCOLAX [Concomitant]
  39. OXYCODONE [Concomitant]
     Dosage: 10 MG, UNK
     Route: 048
  40. RAMIPRIL [Concomitant]
     Dosage: 2.5 MG, UNK
  41. DECADRON                                /CAN/ [Concomitant]
     Dosage: 4 MG, UNK
  42. MIRALAX [Concomitant]
     Dosage: 17 G, UNK
  43. TOPROL-XL [Concomitant]
     Dosage: 25 MG, UNK
  44. LIPITOR [Concomitant]
     Dosage: 40 MG, UNK
  45. ZOMETA [Concomitant]
     Dosage: 4 MG, IVPB
     Route: 042
     Dates: start: 20070206
  46. ARANESP [Concomitant]
     Dosage: 200 MCG
     Route: 058
  47. SENOKOT                                 /UNK/ [Concomitant]
     Dosage: 2 TABS, BID
     Route: 048
  48. DEMEROL [Concomitant]
     Indication: PAIN
     Dosage: 25 MG, UNK
  49. ATIVAN [Concomitant]
     Dosage: 0.5 MG, UNK
     Route: 048
  50. VERAPAMIL [Concomitant]
     Dosage: 180 MG, UNK
  51. DYAZIDE [Concomitant]
  52. RANITIDINE [Concomitant]
     Dosage: 150 MG, UNK
  53. LEVAQUIN [Concomitant]
  54. FLAGYL [Concomitant]
     Dosage: 250 MG, UNK
  55. LANOXIN [Concomitant]
     Dosage: 0.25 MG, UNK
     Route: 048
  56. DECADRON                                /CAN/ [Concomitant]
     Dosage: 4 MG, BID
     Route: 048

REACTIONS (23)
  - ANXIETY [None]
  - ATRIAL FIBRILLATION [None]
  - BACK PAIN [None]
  - BRAIN NATRIURETIC PEPTIDE [None]
  - CARDIAC FAILURE CONGESTIVE [None]
  - CHEST PAIN [None]
  - CHILLS [None]
  - CONCOMITANT DISEASE PROGRESSION [None]
  - CORONARY ARTERIAL STENT INSERTION [None]
  - DEEP VEIN THROMBOSIS [None]
  - DEHYDRATION [None]
  - FATIGUE [None]
  - GASTROINTESTINAL DISORDER [None]
  - HYPERHIDROSIS [None]
  - HYPOTENSION [None]
  - LEUKOCYTOSIS [None]
  - LUNG NEOPLASM MALIGNANT [None]
  - MYOCARDIAL INFARCTION [None]
  - OEDEMA PERIPHERAL [None]
  - OESOPHAGITIS [None]
  - PAIN [None]
  - PULMONARY EMBOLISM [None]
  - VENA CAVA FILTER INSERTION [None]
